FAERS Safety Report 6916562-6 (Version None)
Quarter: 2010Q3

REPORT INFORMATION
  Report Type: 
  Country: None (occurrence: None)
  Receive Date: 20100809
  Receipt Date: 20100809
  Transmission Date: 20110219
  Serious: Yes (Death)
  Sender: FDA-Public Use
  Company Number: None

PATIENT
  Age: 38 Year
  Sex: Female
  Weight: 81.1939 kg

DRUGS (2)
  1. ERLOTINIB HYDROCHLORIDE [Suspect]
     Indication: BREAST CANCER
     Dosage: 150MG 1 X DAY DAYS 5-21 PO
     Route: 048
     Dates: start: 20100503, end: 20100523
  2. BENDAMUSTINE 120MG/M2 CEPHALON [Suspect]
     Indication: BREAST CANCER
     Dosage: 228MG DAYS 1+2 Q28DAYS IV
     Route: 042
     Dates: start: 20100503, end: 20100504

REACTIONS (21)
  - ANAEMIA [None]
  - BACTERIAL INFECTION [None]
  - BREAST DISCHARGE [None]
  - BREAST DISORDER [None]
  - CHEST DISCOMFORT [None]
  - CULTURE POSITIVE [None]
  - CULTURE URINE POSITIVE [None]
  - DECREASED APPETITE [None]
  - DIARRHOEA [None]
  - DRUG TOXICITY [None]
  - FATIGUE [None]
  - HAEMOGLOBIN DECREASED [None]
  - HAEMORRHAGE [None]
  - HYPOTENSION [None]
  - IRON DEFICIENCY [None]
  - LYMPHOCYTE COUNT ABNORMAL [None]
  - PYREXIA [None]
  - RENAL FAILURE ACUTE [None]
  - SEPSIS [None]
  - STAPHYLOCOCCAL INFECTION [None]
  - VAGINITIS GARDNERELLA [None]
